FAERS Safety Report 22136475 (Version 1)
Quarter: 2023Q1

REPORT INFORMATION
  Report Type: Spontaneous
  Country: GB (occurrence: GB)
  Receive Date: 20230324
  Receipt Date: 20230324
  Transmission Date: 20230417
  Serious: Yes (Hospitalization, Other)
  Sender: FDA-Public Use
  Company Number: None

PATIENT
  Age: 69 Year
  Sex: Male

DRUGS (2)
  1. EDOXABAN [Suspect]
     Active Substance: EDOXABAN
     Indication: Atrial fibrillation
     Dosage: UNK UNK, BID
     Route: 065
     Dates: start: 20230116
  2. EDOXABAN [Suspect]
     Active Substance: EDOXABAN
     Dosage: UNK UNK, QD
     Route: 065

REACTIONS (3)
  - Haemoptysis [Recovered/Resolved]
  - Medication error [Unknown]
  - Inappropriate schedule of product administration [Recovered/Resolved]

NARRATIVE: CASE EVENT DATE: 20230215
